FAERS Safety Report 13172091 (Version 2)
Quarter: 2017Q1

REPORT INFORMATION
  Report Type: Report from Study
  Country: None (occurrence: AU)
  Receive Date: 20170131
  Receipt Date: 20170213
  Transmission Date: 20170428
  Serious: Yes (Other)
  Sender: FDA-Public Use
  Company Number: AU-ABBVIE-17P-008-1856670-00

PATIENT
  Age: 80 Year
  Sex: Male

DRUGS (1)
  1. LUCRIN DEPOT [Suspect]
     Active Substance: LEUPROLIDE ACETATE
     Indication: PROSTATE CANCER
     Route: 030
     Dates: start: 20161215

REACTIONS (4)
  - Prostate cancer metastatic [Unknown]
  - Back pain [Recovered/Resolved]
  - Arthralgia [Recovered/Resolved]
  - Lung neoplasm [Unknown]

NARRATIVE: CASE EVENT DATE: 201701
